FAERS Safety Report 4490212-3 (Version None)
Quarter: 2004Q4

REPORT INFORMATION
  Report Type: 
  Country: None (occurrence: None)
  Receive Date: 20041027
  Receipt Date: 20041014
  Transmission Date: 20050328
  Serious: Yes (Hospitalization, Other)
  Sender: FDA-Public Use
  Company Number: 2004079287

PATIENT
  Sex: Female

DRUGS (2)
  1. DILANTIN [Suspect]
     Indication: CONFUSIONAL STATE
     Dosage: 200 MG (200 MG, 1 IN 1 D)
  2. NEURONTIN [Suspect]
     Indication: ILL-DEFINED DISORDER
     Dosage: 400 MG

REACTIONS (6)
  - DRUG INEFFECTIVE [None]
  - LIVER FUNCTION TEST ABNORMAL [None]
  - PANIC ATTACK [None]
  - RENAL DISORDER [None]
  - SURGERY [None]
  - WHITE BLOOD CELL COUNT ABNORMAL [None]
